FAERS Safety Report 11201096 (Version 2)
Quarter: 2015Q3

REPORT INFORMATION
  Report Type: Report from Study
  Country: US (occurrence: US)
  Receive Date: 20150619
  Receipt Date: 20150707
  Transmission Date: 20151125
  Serious: Yes (Hospitalization)
  Sender: FDA-Public Use
  Company Number: US-ACTELION-A-NJ2015-117887

PATIENT
  Age: 33 Year
  Sex: Female

DRUGS (3)
  1. VELETRI [Suspect]
     Active Substance: EPOPROSTENOL
     Indication: PULMONARY ARTERIAL HYPERTENSION
     Dosage: 20-40 NG/KG, PER MIN
     Route: 042
     Dates: start: 20140910
  2. MACITENTAN [Suspect]
     Active Substance: MACITENTAN
     Indication: PULMONARY ARTERIAL HYPERTENSION
     Dosage: 10 MG, QD
     Route: 048
  3. REVATIO [Concomitant]
     Active Substance: SILDENAFIL CITRATE

REACTIONS (10)
  - Central venous catheter removal [Recovered/Resolved]
  - Catheter site infection [Recovered/Resolved]
  - Catheter site erythema [Unknown]
  - Asthma [Unknown]
  - Cough [Unknown]
  - Blood culture negative [Unknown]
  - Catheter site pain [Unknown]
  - Catheter site discharge [Unknown]
  - Central venous catheterisation [Recovered/Resolved]
  - Dyspnoea [Unknown]

NARRATIVE: CASE EVENT DATE: 20141018
